FAERS Safety Report 8212253 (Version 3)
Quarter: 2012Q4

REPORT INFORMATION
  Report Type: Spontaneous
  Country: US (occurrence: None)
  Receive Date: 20111020
  Receipt Date: 20120821
  Transmission Date: 20130627
  Serious: Yes (Other)
  Sender: FDA-Public Use
  Company Number: 2011MA014745

PATIENT
  Age: 41 Year
  Sex: Female
  Weight: 141.07 kg

DRUGS (44)
  1. METOCLOPRAMIDE [Suspect]
     Indication: NAUSEA
     Dosage: Q6H PRN;PO
     Route: 048
     Dates: start: 20061103, end: 201210
  2. METOCLOPRAMIDE [Suspect]
     Indication: GASTROOESOPHAGEAL REFLUX DISEASE
     Dosage: Q6H PRN;PO
     Route: 048
     Dates: start: 20061103, end: 201210
  3. XANAX [Concomitant]
  4. WELLBUTRIN [Concomitant]
  5. ZOLOFT [Concomitant]
  6. TOPAMAX [Concomitant]
  7. CARAFATE [Concomitant]
  8. OMEPRAZOLE [Concomitant]
  9. PROMETHAZINE [Concomitant]
  10. SEROQUEL [Concomitant]
  11. SERTRALINE HYDROCHLORIDE [Concomitant]
  12. EFFEXOR [Concomitant]
  13. DIETARY SUPPLEMENTS [Concomitant]
  14. ABILIFY [Concomitant]
  15. ACIPHEX [Concomitant]
  16. AMOXICILLIN [Concomitant]
  17. BUPROPION [Concomitant]
  18. CARISOPRODOOL [Concomitant]
  19. CHERATUSSIN [Concomitant]
  20. CIPROFLOXACIN [Concomitant]
  21. CLONOZAZEPAM [Concomitant]
  22. CYANOCOBALAMIN [Concomitant]
  23. CYCLOBENZAPRINE [Concomitant]
  24. DIALTIAZEM [Concomitant]
  25. DIPHENOXYLATE/ATROPINE [Concomitant]
  26. DOXYCYCLINE [Concomitant]
  27. FEXOFENADINE [Concomitant]
  28. FLUDROCORTISONE [Concomitant]
  29. GLYBURIDE [Concomitant]
  30. HYDROCODONE/APAP [Concomitant]
  31. HYDROXYZINE [Concomitant]
  32. LISINOPRIL/HCTZ [Concomitant]
  33. LEXAPRO [Concomitant]
  34. METFORMIN [Concomitant]
  35. METHOCARBAMOL [Concomitant]
  36. NABUMETONE [Concomitant]
  37. NEXIUM [Concomitant]
  38. OXYCONTIN [Concomitant]
  39. PROAIR [Concomitant]
  40. PROMETHAZINE [Concomitant]
  41. REQUIP [Concomitant]
  42. ROXICET [Concomitant]
  43. SIMVASTATIN [Concomitant]
  44. SINGULAIR [Concomitant]

REACTIONS (15)
  - Tardive dyskinesia [None]
  - Economic problem [None]
  - Emotional disorder [None]
  - Anxiety [None]
  - Insomnia [None]
  - Mental disorder [None]
  - Nausea [None]
  - Sciatica [None]
  - Ulcer [None]
  - Hypertension [None]
  - Hypoglycaemia [None]
  - Gastrooesophageal reflux disease [None]
  - Restless legs syndrome [None]
  - Condition aggravated [None]
  - Depression [None]
